FAERS Safety Report 4946383-5 (Version None)
Quarter: 2006Q1

REPORT INFORMATION
  Report Type: 
  Country: None (occurrence: None)
  Receive Date: 20060317
  Receipt Date: 20060306
  Transmission Date: 20060701
  Serious: Yes (Other)
  Sender: FDA-Public Use
  Company Number: US-JNJFOC-20060301544

PATIENT
  Age: 7 Decade
  Sex: Female
  Weight: 72.58 kg

DRUGS (8)
  1. REMICADE [Suspect]
     Route: 042
  2. REMICADE [Suspect]
     Indication: RHEUMATOID ARTHRITIS
     Route: 042
  3. AVALIDE [Concomitant]
  4. AVALIDE [Concomitant]
     Indication: BLOOD PRESSURE
  5. PREMARIN [Concomitant]
     Indication: HORMONE REPLACEMENT THERAPY
  6. KADIAN [Concomitant]
     Indication: PAIN
  7. VITAMINS [Concomitant]
     Indication: NUTRITIONAL SUPPORT
  8. SYNTHROID [Concomitant]
     Indication: THYROID DISORDER

REACTIONS (1)
  - SHOULDER ARTHROPLASTY [None]
